FAERS Safety Report 9959577 (Version 1)
Quarter: 2014Q1

REPORT INFORMATION
  Report Type: Report from Study
  Country: US (occurrence: US)
  Receive Date: 20140305
  Receipt Date: 20140305
  Transmission Date: 20141002
  Serious: No
  Sender: FDA-Public Use
  Company Number: US-ABBVIE-13P-163-1105852-00

PATIENT
  Sex: Male

DRUGS (8)
  1. HUMIRA [Suspect]
     Indication: CROHN^S DISEASE
  2. VICODIN [Suspect]
     Indication: BACK PAIN
  3. VICODIN [Suspect]
     Dosage: DOSAGE INCREASED
  4. VITAMIN D [Concomitant]
     Indication: BONE DISORDER
     Dosage: DAILY
  5. VITAMIN D [Concomitant]
     Indication: VITAMIN SUPPLEMENTATION
  6. CITRACAL [Concomitant]
     Indication: BONE DISORDER
     Dosage: DAILY
  7. CITRACAL [Concomitant]
     Indication: VITAMIN SUPPLEMENTATION
  8. CLARITINE [Concomitant]
     Indication: HYPERSENSITIVITY

REACTIONS (9)
  - Dry skin [Not Recovered/Not Resolved]
  - Back pain [Not Recovered/Not Resolved]
  - Fatigue [Not Recovered/Not Resolved]
  - Rheumatoid arthritis [Not Recovered/Not Resolved]
  - Abnormal faeces [Not Recovered/Not Resolved]
  - Abdominal pain [Not Recovered/Not Resolved]
  - Decreased appetite [Not Recovered/Not Resolved]
  - Weight decreased [Not Recovered/Not Resolved]
  - Scab [Not Recovered/Not Resolved]
